FAERS Safety Report 4985061-3 (Version None)
Quarter: 2006Q2

REPORT INFORMATION
  Report Type: 
  Country: None (occurrence: None)
  Receive Date: 20060421
  Receipt Date: 20060406
  Transmission Date: 20061013
  Serious: Yes (Death, Hospitalization)
  Sender: FDA-Public Use
  Company Number: US017203

PATIENT
  Age: 34 Year
  Sex: Female

DRUGS (4)
  1. MODAFINIL [Suspect]
     Indication: SOMNOLENCE
     Dosage: 400 MG QD; ORAL
     Route: 048
  2. URBANYL [Suspect]
     Indication: SOMNOLENCE
     Dosage: 60 MG QD; ORAL
     Route: 048
  3. LORMETAZEPAM [Suspect]
     Indication: SOMNOLENCE
     Dosage: 8 MG QHS; ORAL
     Route: 048
  4. MEPRONIZINE [Suspect]
     Indication: SOMNOLENCE

REACTIONS (9)
  - AGITATION [None]
  - ANOREXIA [None]
  - ANXIETY [None]
  - BLOOD POTASSIUM DECREASED [None]
  - CACHEXIA [None]
  - CONDITION AGGRAVATED [None]
  - OVERDOSE [None]
  - SLEEP DISORDER [None]
  - SPEECH DISORDER [None]
